FAERS Safety Report 21036671 (Version 1)
Quarter: 2022Q3

REPORT INFORMATION
  Report Type: Spontaneous
  Country: FR (occurrence: FR)
  Receive Date: 20220702
  Receipt Date: 20220702
  Transmission Date: 20221027
  Serious: Yes (Hospitalization)
  Sender: FDA-Public Use
  Company Number: None

PATIENT
  Age: 86 Year
  Sex: Female
  Weight: 64.1 kg

DRUGS (10)
  1. GALANTAMINE HYDROBROMIDE [Suspect]
     Active Substance: GALANTAMINE HYDROBROMIDE
     Indication: Cognitive disorder
     Dosage: UNIT DOSE 1DF, FREQUENCY TIME 1 DAYS
     Route: 048
     Dates: end: 20220522
  2. MANIDIPINE HYDROCHLORIDE [Suspect]
     Active Substance: MANIDIPINE HYDROCHLORIDE
     Indication: Hypertension
     Dosage: UNIT DOSE 1DF, FREQUENCY TIME 1 DAYS
     Route: 048
     Dates: end: 202205
  3. MIANSERIN HYDROCHLORIDE [Suspect]
     Active Substance: MIANSERIN HYDROCHLORIDE
     Indication: Anxiety
     Dosage: UNIT DOSE 10 MG, FREQUENCY TIME 1 DAYS
     Route: 048
     Dates: start: 202007
  4. OXAZEPAM [Suspect]
     Active Substance: OXAZEPAM
     Indication: Anxiety
     Dosage: UNIT DOSE 30 MG, FREQUENCY TIME 1 DAYS
     Route: 048
     Dates: start: 202007
  5. MICARDIS [Suspect]
     Active Substance: TELMISARTAN
     Indication: Hypertension
     Dosage: UNIT DOSE 1DF, FREQUENCY TIME 1 DAYS
     Route: 048
  6. KARDEGIC [Suspect]
     Active Substance: ASPIRIN DL-LYSINE
     Indication: Transient ischaemic attack
     Dosage: KARDEGIC 160 MG, POWDER FOR ORAL SOLUTION IN SACHET,UNIT DOSE 160 MG, FREQUENCY TIME 1 DAYS, DURATIO
     Route: 048
     Dates: start: 202007, end: 20220522
  7. LYRICA [Suspect]
     Active Substance: PREGABALIN
     Indication: Anxiety
     Dosage: LYRICA 25 MG, CAPSULE,UNIT DOSE 1 DF, FREQUENCY TIME 1 DAYS
     Route: 048
     Dates: end: 20220522
  8. ACETAMINOPHEN [Concomitant]
     Active Substance: ACETAMINOPHEN
     Indication: Product used for unknown indication
  9. LETROZOLE [Concomitant]
     Active Substance: LETROZOLE
     Indication: Product used for unknown indication
  10. CHOLECALCIFEROL [Concomitant]
     Active Substance: CHOLECALCIFEROL
     Indication: Product used for unknown indication

REACTIONS (2)
  - Cerebral haemorrhage [Recovering/Resolving]
  - Fall [Recovering/Resolving]

NARRATIVE: CASE EVENT DATE: 20220501
